FAERS Safety Report 6376550-8 (Version None)
Quarter: 2009Q3

REPORT INFORMATION
  Report Type: 
  Country: None (occurrence: None)
  Receive Date: 20090921
  Receipt Date: 20090907
  Transmission Date: 20100115
  Serious: Yes (Congenital Anomaly, Other)
  Sender: FDA-Public Use
  Company Number: ADR24672009

PATIENT
  Sex: Female

DRUGS (2)
  1. TOPIRAMATE [Suspect]
     Indication: GRAND MAL CONVULSION
     Dosage: 400 MG -1/1 DAY TRANSPLACENTAL
     Route: 064
  2. LAMOTRIGINE [Concomitant]

REACTIONS (2)
  - DYSMORPHISM [None]
  - MATERNAL DRUGS AFFECTING FOETUS [None]
